FAERS Safety Report 9937603 (Version 1)
Quarter: 2014Q1

REPORT INFORMATION
  Report Type: Report from Study
  Country: JP (occurrence: JP)
  Receive Date: 20140303
  Receipt Date: 20140303
  Transmission Date: 20141002
  Serious: Yes (Death)
  Sender: FDA-Public Use
  Company Number: JP-PFIZER INC-2014057525

PATIENT
  Age: 48 Year
  Sex: Female
  Weight: 98.4 kg

DRUGS (5)
  1. CRIZOTINIB [Suspect]
     Indication: NON-SMALL CELL LUNG CANCER
     Dosage: 250 MG, 2X/DAY
     Route: 048
     Dates: start: 20120605
  2. PARIET [Concomitant]
     Dosage: 20 MG, 1X/DAY
     Route: 048
     Dates: start: 20120727
  3. TAKEPRON [Concomitant]
     Dosage: 15 MG, 1X/DAY
     Route: 048
     Dates: start: 20120713, end: 20120726
  4. ALFAROL [Concomitant]
     Dosage: 0.25 UG, 1X/DAY
     Route: 048
     Dates: start: 20120713
  5. BIOFERMIN [Concomitant]
     Dosage: 1 G, AS NEEDED
     Route: 048

REACTIONS (1)
  - Death [Fatal]
